FAERS Safety Report 4611893-7 (Version None)
Quarter: 2005Q2

REPORT INFORMATION
  Report Type: 
  Country: None (occurrence: None)
  Receive Date: 20050308
  Receipt Date: 20050118
  Transmission Date: 20051028
  Serious: Yes (Other)
  Sender: FDA-Public Use
  Company Number: 2005UW00924

PATIENT
  Age: 76 Year
  Sex: Female

DRUGS (4)
  1. CRESTOR [Suspect]
     Dosage: 10 MG DAILY PO
     Route: 048
     Dates: start: 20041123
  2. LOPID [Concomitant]
  3. LISINOPRIL [Concomitant]
  4. VICODIN [Concomitant]

REACTIONS (2)
  - CHROMATURIA [None]
  - MYALGIA [None]
